FAERS Safety Report 19222463 (Version 1)
Quarter: 2021Q2

REPORT INFORMATION
  Report Type: Spontaneous
  Country: US (occurrence: US)
  Receive Date: 20210506
  Receipt Date: 20210506
  Transmission Date: 20210717
  Serious: Yes (Hospitalization, Disabling, Other)
  Sender: FDA-Public Use
  Company Number: None

PATIENT
  Age: 24 Year
  Sex: Female

DRUGS (3)
  1. STEROIDS [Concomitant]
     Active Substance: UNSPECIFIED INGREDIENT
  2. JUV?DERM VOLBELLA [Suspect]
     Active Substance: HYALURONIC ACID\LIDOCAINE HYDROCHLORIDE
  3. HYALURONIDASE [Suspect]
     Active Substance: HYALURONIDASE

REACTIONS (9)
  - Vision blurred [None]
  - Swelling [None]
  - Contusion [None]
  - Ageusia [None]
  - Dry eye [None]
  - Glaucoma [None]
  - Stiff tongue [None]
  - Reduced facial expression [None]
  - Nerve injury [None]

NARRATIVE: CASE EVENT DATE: 20210410
